APPROVED DRUG PRODUCT: DANAZOL
Active Ingredient: DANAZOL
Strength: 200MG
Dosage Form/Route: CAPSULE;ORAL
Application: A071569 | Product #001
Applicant: AMERICAN THERAPEUTICS INC
Approved: Dec 30, 1987 | RLD: No | RS: No | Type: DISCN